FAERS Safety Report 14799148 (Version 1)
Quarter: 2018Q2

REPORT INFORMATION
  Report Type: Report from Study
  Country: GB (occurrence: GB)
  Receive Date: 20180424
  Receipt Date: 20180424
  Transmission Date: 20180711
  Serious: Yes (Hospitalization)
  Sender: FDA-Public Use
  Company Number: GB-ROCHE-2094635

PATIENT
  Age: 43 Year
  Sex: Female

DRUGS (8)
  1. DOCETAXEL. [Suspect]
     Active Substance: DOCETAXEL
     Indication: HER-2 POSITIVE BREAST CANCER
     Dosage: LOADING DOSE
     Route: 042
     Dates: start: 20160718
  2. TRASTUZUMAB. [Suspect]
     Active Substance: TRASTUZUMAB
     Indication: HER-2 POSITIVE BREAST CANCER
     Dosage: LOADING DOSE
     Route: 042
     Dates: start: 20160718
  3. TRASTUZUMAB. [Suspect]
     Active Substance: TRASTUZUMAB
     Dosage: MAINTENANCE DOSE
     Route: 042
     Dates: start: 20160830, end: 20160830
  4. PERTUZUMAB. [Suspect]
     Active Substance: PERTUZUMAB
     Indication: HER-2 POSITIVE BREAST CANCER
     Dosage: LOADING DOSE
     Route: 042
     Dates: start: 20160718
  5. DOCETAXEL. [Suspect]
     Active Substance: DOCETAXEL
     Dosage: MAINTENANCE DOSE
     Route: 042
     Dates: start: 20160808, end: 20160808
  6. DOCETAXEL. [Suspect]
     Active Substance: DOCETAXEL
     Dosage: MAINTENANCE DOSE
     Route: 042
     Dates: start: 20160830, end: 20160830
  7. PERTUZUMAB. [Suspect]
     Active Substance: PERTUZUMAB
     Dosage: MAINTENANCE DOSE
     Route: 042
     Dates: start: 20160808, end: 20160830
  8. TRASTUZUMAB. [Suspect]
     Active Substance: TRASTUZUMAB
     Dosage: MAINTENANCE DOSE
     Route: 042
     Dates: start: 20160808, end: 20160808

REACTIONS (1)
  - Stoma site pain [Recovered/Resolved with Sequelae]

NARRATIVE: CASE EVENT DATE: 20161212
